FAERS Safety Report 23364753 (Version 2)
Quarter: 2024Q1

REPORT INFORMATION
  Report Type: Other
  Country: FR (occurrence: FR)
  Receive Date: 20240104
  Receipt Date: 20240122
  Transmission Date: 20240410
  Serious: Yes (Death, Life-Threatening)
  Sender: FDA-Public Use
  Company Number: None

PATIENT

DRUGS (4)
  1. ARIPIPRAZOLE [Suspect]
     Active Substance: ARIPIPRAZOLE
     Indication: Schizophrenia
     Dosage: 20 MILLIGRAM, QD
     Route: 048
     Dates: end: 20231130
  2. CLOZAPINE [Suspect]
     Active Substance: CLOZAPINE
     Indication: Schizophrenia
     Dosage: 500 MILLIGRAM, QD
     Route: 048
     Dates: start: 20231106, end: 20231130
  3. ANAFRANIL [Suspect]
     Active Substance: CLOMIPRAMINE HYDROCHLORIDE
     Indication: Product used for unknown indication
     Dosage: 50 MILLIGRAM, QD
     Route: 048
     Dates: end: 20231130
  4. CYAMEMAZINE [Suspect]
     Active Substance: CYAMEMAZINE
     Indication: Schizophrenia
     Dosage: 125 GTT DROPS, QD
     Route: 048
     Dates: end: 20231130

REACTIONS (1)
  - Large intestinal obstruction [Fatal]

NARRATIVE: CASE EVENT DATE: 20231130
